FAERS Safety Report 16369343 (Version 1)
Quarter: 2019Q2

REPORT INFORMATION
  Report Type: Report from Study
  Country: US (occurrence: US)
  Receive Date: 20190529
  Receipt Date: 20190529
  Transmission Date: 20190711
  Serious: Yes (Other)
  Sender: FDA-Public Use
  Company Number: US-ALEXION PHARMACEUTICALS INC.-A201907956

PATIENT
  Sex: Male

DRUGS (1)
  1. SOLIRIS [Suspect]
     Active Substance: ECULIZUMAB
     Indication: PRODUCT USED FOR UNKNOWN INDICATION
     Route: 042

REACTIONS (5)
  - Condition aggravated [Unknown]
  - Postoperative adhesion [Not Recovered/Not Resolved]
  - Obsessive-compulsive disorder [Unknown]
  - Abdominal operation [Recovered/Resolved]
  - Post procedural discomfort [Not Recovered/Not Resolved]
